FAERS Safety Report 5967455-2 (Version None)
Quarter: 2008Q4

REPORT INFORMATION
  Report Type: 
  Country: None (occurrence: None)
  Receive Date: 20081125
  Receipt Date: 20081116
  Transmission Date: 20090506
  Serious: Yes (Other)
  Sender: FDA-Public Use
  Company Number: US-PFIZER INC-2008096989

PATIENT
  Sex: Male
  Weight: 95.3 kg

DRUGS (11)
  1. CHANTIX [Suspect]
     Indication: SMOKING CESSATION THERAPY
     Route: 048
     Dates: start: 20081020, end: 20081104
  2. PREDNISONE TAB [Suspect]
     Indication: URTICARIA
     Route: 048
     Dates: start: 20081106, end: 20081111
  3. REYATAZ [Concomitant]
     Dates: start: 20050101
  4. ATENOLOL [Concomitant]
     Dates: start: 20050101
  5. TRICOR [Concomitant]
     Dates: start: 20050101
  6. ZIDOVUDINE [Concomitant]
     Dates: start: 20050101
  7. PRAVASTATIN [Concomitant]
     Dates: start: 20050101
  8. TRUVADA [Concomitant]
     Dates: start: 20050101
  9. FISH OIL [Concomitant]
     Dates: start: 20050101
  10. NORVIR [Concomitant]
     Dates: start: 20050101
  11. ACETYLSALICYLIC ACID SRT [Concomitant]
     Dates: start: 20050101

REACTIONS (1)
  - SKIN EXFOLIATION [None]
